FAERS Safety Report 8354270-8 (Version None)
Quarter: 2012Q2

REPORT INFORMATION
  Report Type: 
  Country: None (occurrence: None)
  Receive Date: 20120511
  Receipt Date: 20120507
  Transmission Date: 20120825
  Serious: Yes (Disabling)
  Sender: FDA-Public Use
  Company Number: US-PFIZER INC-2012086106

PATIENT
  Sex: Female

DRUGS (1)
  1. LIPITOR [Suspect]
     Dosage: 10 MG, ONCE DAILY
     Route: 048

REACTIONS (1)
  - BACK DISORDER [None]
